FAERS Safety Report 9785610 (Version 1)
Quarter: 2013Q4

REPORT INFORMATION
  Report Type: Spontaneous
  Country: US (occurrence: None)
  Receive Date: 20131226
  Receipt Date: 20131226
  Transmission Date: 20140711
  Serious: Yes (Other)
  Sender: FDA-Public Use
  Company Number: None

PATIENT
  Age: 22 Year
  Sex: Female
  Weight: 56.7 kg

DRUGS (1)
  1. VICODIN [Suspect]
     Indication: PROCEDURAL PAIN
     Dosage: 1-2 PILLS  FOUR TIMES DAILY  TAKEN BY MOUTH
     Route: 048
     Dates: start: 20050318, end: 20050319

REACTIONS (7)
  - Grand mal convulsion [None]
  - Vomiting [None]
  - Migraine [None]
  - Syncope [None]
  - Pain [None]
  - Nausea [None]
  - Hyperreflexia [None]
